FAERS Safety Report 5163568-6 (Version None)
Quarter: 2006Q4

REPORT INFORMATION
  Report Type: 
  Country: None (occurrence: None)
  Receive Date: 20061124
  Receipt Date: 20061115
  Transmission Date: 20070319
  Serious: Yes (Other)
  Sender: FDA-Public Use
  Company Number: 2006141440

PATIENT
  Age: 19 Year
  Sex: Female
  Weight: 122.4712 kg

DRUGS (1)
  1. DEPO-PROVERA [Suspect]
     Indication: MENORRHAGIA
     Dosage: 150 MG (150 MG, 1ST INJECTION)
     Dates: start: 20050401, end: 20050401

REACTIONS (5)
  - DISTURBANCE IN ATTENTION [None]
  - HYPOTHYROIDISM [None]
  - MEMORY IMPAIRMENT [None]
  - MENTAL RETARDATION SEVERITY UNSPECIFIED [None]
  - NASOPHARYNGITIS [None]
